FAERS Safety Report 10417573 (Version 1)
Quarter: 2014Q3

REPORT INFORMATION
  Report Type: Spontaneous
  Country: US (occurrence: None)
  Receive Date: 20140828
  Receipt Date: 20140828
  Transmission Date: 20150326
  Serious: Yes (Death, Hospitalization)
  Sender: FDA-Public Use
  Company Number: None

PATIENT
  Age: 52 Year
  Sex: Male
  Weight: 88.9 kg

DRUGS (1)
  1. SUNITINIB MALATE [Suspect]
     Active Substance: SUNITINIB MALATE
     Dosage: SUBJECT TOOK 50 MG ON 5/7/14, MORNING PRIOR TO ADMISSION, DAY 22 OF CYCLE ONE.. THEN HELD.

REACTIONS (2)
  - Small intestinal obstruction [None]
  - Metastasis [None]

NARRATIVE: CASE EVENT DATE: 20140507
